FAERS Safety Report 10193094 (Version 2)
Quarter: 2014Q2

REPORT INFORMATION
  Report Type: Spontaneous
  Country: US (occurrence: US)
  Receive Date: 20140524
  Receipt Date: 20140524
  Transmission Date: 20141212
  Serious: No
  Sender: FDA-Public Use
  Company Number: US-SANOFI-AVENTIS-2012SA077980

PATIENT
  Age: 74 Year
  Sex: Male

DRUGS (3)
  1. LANTUS SOLOSTAR [Suspect]
     Indication: TYPE 2 DIABETES MELLITUS
     Dosage: 18-22 UNITS DOSE:40 UNIT(S)
     Route: 058
     Dates: start: 2007
  2. SOLOSTAR [Concomitant]
     Indication: TYPE 2 DIABETES MELLITUS
     Dates: start: 2011
  3. CORTICOSTEROID NOS [Suspect]
     Route: 065

REACTIONS (4)
  - Contusion [Unknown]
  - Blood glucose increased [Unknown]
  - Anxiety [Unknown]
  - Glycosylated haemoglobin increased [Unknown]
